FAERS Safety Report 5758684-1 (Version None)
Quarter: 2008Q2

REPORT INFORMATION
  Report Type: 
  Country: None (occurrence: None)
  Receive Date: 20080603
  Receipt Date: 20080603
  Transmission Date: 20081010
  Serious: Yes (Other)
  Sender: FDA-Public Use
  Company Number: None

PATIENT
  Age: 53 Year
  Sex: Male
  Weight: 64.7 kg

DRUGS (4)
  1. INTRON A [Suspect]
     Indication: RENAL CELL CARCINOMA
     Dosage: 6 MILLION IU 3X WEEKLY SC
     Route: 058
     Dates: start: 20080509
  2. INTRON A [Suspect]
     Indication: RENAL CELL CARCINOMA
     Dosage: 6 MILLION IU 3X WEEKLY SC
     Route: 058
     Dates: start: 20080511
  3. INTRON A [Suspect]
     Indication: RENAL CELL CARCINOMA
     Dosage: 6 MILLION IU 3X WEEKLY SC
     Route: 058
     Dates: start: 20080513
  4. ROFERON-A [Suspect]

REACTIONS (1)
  - WRONG DRUG ADMINISTERED [None]
